FAERS Safety Report 17592892 (Version 1)
Quarter: 2020Q1

REPORT INFORMATION
  Report Type: Spontaneous
  Country: US (occurrence: US)
  Receive Date: 20200327
  Receipt Date: 20200327
  Transmission Date: 20200409
  Serious: Yes (Hospitalization, Other)
  Sender: FDA-Public Use
  Company Number: US-HIKMA PHARMACEUTICALS USA INC.-US-H14001-20-01614

PATIENT
  Age: 55 Year
  Sex: Male

DRUGS (2)
  1. CEFEPIME [Suspect]
     Active Substance: CEFEPIME HYDROCHLORIDE
     Indication: PERITONEAL CLOUDY EFFLUENT
     Route: 033
  2. VANCOMYCIN [Suspect]
     Active Substance: VANCOMYCIN
     Indication: PERITONEAL CLOUDY EFFLUENT
     Route: 033

REACTIONS (2)
  - Clostridium difficile infection [Recovered/Resolved]
  - Colitis [Recovered/Resolved]
